FAERS Safety Report 20503708 (Version 5)
Quarter: 2022Q3

REPORT INFORMATION
  Report Type: Report from Study
  Country: FR (occurrence: FR)
  Receive Date: 20220222
  Receipt Date: 20220907
  Transmission Date: 20221027
  Serious: Yes (Hospitalization, Other)
  Sender: FDA-Public Use
  Company Number: FR-NOVARTISPH-NVSC2022FR037318

PATIENT
  Sex: Female
  Weight: 43 kg

DRUGS (3)
  1. TABRECTA [Suspect]
     Active Substance: CAPMATINIB
     Indication: Lung adenocarcinoma stage IV
     Dosage: 400 MG, BID
     Route: 048
     Dates: start: 20211221
  2. TABRECTA [Suspect]
     Active Substance: CAPMATINIB
     Dosage: 200 MG, BID
     Route: 048
     Dates: start: 20220113
  3. TABRECTA [Suspect]
     Active Substance: CAPMATINIB
     Dosage: 300 MG, QD
     Route: 048

REACTIONS (9)
  - Behaviour disorder [Recovering/Resolving]
  - Acute kidney injury [Recovering/Resolving]
  - Oedema peripheral [Not Recovered/Not Resolved]
  - Creatinine renal clearance decreased [Unknown]
  - Gamma-glutamyltransferase increased [Unknown]
  - Anaemia [Unknown]
  - Alanine aminotransferase increased [Unknown]
  - Aspartate aminotransferase increased [Unknown]
  - Off label use [Unknown]

NARRATIVE: CASE EVENT DATE: 20220110
